FAERS Safety Report 6798133-8 (Version None)
Quarter: 2010Q2

REPORT INFORMATION
  Report Type: 
  Country: None (occurrence: None)
  Receive Date: 20100623
  Receipt Date: 20100614
  Transmission Date: 20101027
  Serious: Yes (Other)
  Sender: FDA-Public Use
  Company Number: 201004IM001115

PATIENT

DRUGS (1)
  1. ACTIMMUNE [Suspect]
     Indication: LUNG INFECTION
     Dosage: UG, THREE TIMES A WEEK, SUBCUTANEOUS, TOTAL OF SIX COURSES

REACTIONS (1)
  - ANAEMIA [None]
